FAERS Safety Report 16749616 (Version 1)
Quarter: 2019Q3

REPORT INFORMATION
  Report Type: Spontaneous
  Country: US (occurrence: US)
  Receive Date: 20190710
  Receipt Date: 20190710
  Transmission Date: 20191005
  Serious: Yes (Hospitalization)
  Sender: FDA-Public Use
  Company Number: None

PATIENT
  Age: 15 Year
  Sex: Male
  Weight: 63.1 kg

DRUGS (1)
  1. BINIMETINIB 15MG [Suspect]
     Active Substance: BINIMETINIB
     Indication: NEUROFIBROMA
     Route: 048
     Dates: start: 20190612, end: 20190624

REACTIONS (2)
  - Purulent discharge [None]
  - Cellulitis [None]

NARRATIVE: CASE EVENT DATE: 20190627
